FAERS Safety Report 6730277-9 (Version None)
Quarter: 2010Q2

REPORT INFORMATION
  Report Type: 
  Country: None (occurrence: None)
  Receive Date: 20100518
  Receipt Date: 20100510
  Transmission Date: 20101027
  Serious: Yes (Hospitalization)
  Sender: FDA-Public Use
  Company Number: NL-SANOFI-AVENTIS-2010SA027270

PATIENT
  Age: 75 Year
  Sex: Male

DRUGS (16)
  1. SOTALOL HCL [Suspect]
     Indication: DRUG USE FOR UNKNOWN INDICATION
     Route: 065
  2. SOTALOL HCL [Suspect]
     Indication: MULTIPLE DRUG OVERDOSE
     Route: 065
  3. FUROSEMIDE [Suspect]
     Indication: DRUG USE FOR UNKNOWN INDICATION
     Route: 065
  4. FUROSEMIDE [Suspect]
     Indication: MULTIPLE DRUG OVERDOSE
     Route: 065
  5. AMLODIPINE [Suspect]
     Indication: DRUG USE FOR UNKNOWN INDICATION
     Route: 065
  6. AMLODIPINE [Suspect]
     Indication: MULTIPLE DRUG OVERDOSE
     Route: 065
  7. DIGOXIN [Interacting]
     Indication: DRUG USE FOR UNKNOWN INDICATION
     Route: 065
  8. DIGOXIN [Interacting]
     Indication: MULTIPLE DRUG OVERDOSE
     Route: 065
  9. ISOSORBIDE MONONITRATE [Suspect]
     Indication: DRUG USE FOR UNKNOWN INDICATION
     Route: 065
  10. ISOSORBIDE MONONITRATE [Suspect]
     Indication: MULTIPLE DRUG OVERDOSE
     Route: 065
  11. ACENOCOUMAROL [Suspect]
     Indication: DRUG USE FOR UNKNOWN INDICATION
     Route: 065
  12. ACENOCOUMAROL [Suspect]
     Indication: MULTIPLE DRUG OVERDOSE
     Route: 065
  13. ATORVASTATIN [Suspect]
     Indication: DRUG USE FOR UNKNOWN INDICATION
     Route: 065
  14. ATORVASTATIN [Suspect]
     Indication: MULTIPLE DRUG OVERDOSE
     Route: 065
  15. PERINDOPRIL [Suspect]
     Indication: DRUG USE FOR UNKNOWN INDICATION
     Route: 065
  16. PERINDOPRIL [Suspect]
     Indication: MULTIPLE DRUG OVERDOSE
     Route: 065

REACTIONS (4)
  - CARDIOACTIVE DRUG LEVEL INCREASED [None]
  - CARDIOGENIC SHOCK [None]
  - MULTIPLE DRUG OVERDOSE INTENTIONAL [None]
  - RENAL FAILURE [None]
